FAERS Safety Report 18210171 (Version 1)
Quarter: 2020Q3

REPORT INFORMATION
  Report Type: Spontaneous
  Country: DE (occurrence: DE)
  Receive Date: 20200829
  Receipt Date: 20200829
  Transmission Date: 20201103
  Serious: Yes (Other)
  Sender: FDA-Public Use
  Company Number: NVSC2020DE233694

PATIENT
  Age: 30 Year
  Sex: Male
  Weight: 100 kg

DRUGS (2)
  1. ARIPIPRAZOL BETA [Suspect]
     Active Substance: ARIPIPRAZOLE
     Indication: PRODUCT USED FOR UNKNOWN INDICATION
     Dosage: UNK, ONCE/SINGLE (20?30 TABLETS)
     Route: 048
  2. QUETIAPIN HEXAL 50 MG RETARDTABLETTEN [Suspect]
     Active Substance: QUETIAPINE FUMARATE
     Indication: PRODUCT USED FOR UNKNOWN INDICATION
     Dosage: 30 DF, ONCE/SINGLE
     Route: 048

REACTIONS (6)
  - Sluggishness [Unknown]
  - Somnolence [Unknown]
  - Suicide attempt [Unknown]
  - Sinus tachycardia [Unknown]
  - Intentional overdose [Unknown]
  - Disorientation [Unknown]
